FAERS Safety Report 21039514 (Version 2)
Quarter: 2022Q3

REPORT INFORMATION
  Report Type: Report from Study
  Country: AU (occurrence: AU)
  Receive Date: 20220704
  Receipt Date: 20220715
  Transmission Date: 20221027
  Serious: Yes (Other)
  Sender: FDA-Public Use
  Company Number: AU-EXELIXIS-CABO-21038932

PATIENT
  Age: 20 Year
  Sex: Male
  Weight: 62.4 kg

DRUGS (2)
  1. CABOMETYX [Suspect]
     Active Substance: CABOZANTINIB S-MALATE
     Indication: Hepatocellular carcinoma
     Dosage: 60 MG, QD
     Route: 048
     Dates: start: 202104, end: 202203
  2. CABOMETYX [Suspect]
     Active Substance: CABOZANTINIB S-MALATE
     Indication: Metastases to bone
     Dosage: UNK
     Route: 048

REACTIONS (6)
  - Pneumothorax [Recovered/Resolved]
  - Loss of therapeutic response [Unknown]
  - Liver function test abnormal [Unknown]
  - Malignant neoplasm progression [Recovering/Resolving]
  - Metastases to bone [Recovering/Resolving]
  - Off label use [Unknown]

NARRATIVE: CASE EVENT DATE: 20211201
